FAERS Safety Report 6260211-X (Version None)
Quarter: 2009Q3

REPORT INFORMATION
  Report Type: 
  Country: None (occurrence: None)
  Receive Date: 20090708
  Receipt Date: 20090304
  Transmission Date: 20100115
  Serious: Yes (Death)
  Sender: FDA-Public Use
  Company Number: B0582605A

PATIENT
  Age: 86 Year
  Sex: Male
  Weight: 71 kg

DRUGS (6)
  1. OMACOR [Suspect]
     Dosage: 1000MG PER DAY
     Route: 048
     Dates: start: 20050401, end: 20050101
  2. ASPIRIN [Concomitant]
  3. CLOPIDOGREL [Concomitant]
  4. DIURETICS [Concomitant]
  5. STATINS [Concomitant]
  6. DIGITALIS TAB [Concomitant]

REACTIONS (2)
  - CARDIAC FAILURE [None]
  - SUDDEN CARDIAC DEATH [None]
